FAERS Safety Report 14918777 (Version 4)
Quarter: 2018Q3

REPORT INFORMATION
  Report Type: Spontaneous
  Country: US (occurrence: US)
  Receive Date: 20180521
  Receipt Date: 20180912
  Transmission Date: 20181010
  Serious: No
  Sender: FDA-Public Use
  Company Number: US-PFIZER INC-2018205301

PATIENT
  Age: 66 Year
  Sex: Female
  Weight: 103 kg

DRUGS (2)
  1. AMOREX [Concomitant]
     Indication: BREAST CANCER STAGE IV
     Dosage: 1 MG, 1X/DAY
     Route: 048
  2. IBRANCE [Suspect]
     Active Substance: PALBOCICLIB
     Indication: BREAST CANCER STAGE IV
     Dosage: 75 MG, 1X/DAY
     Route: 048
     Dates: start: 201805

REACTIONS (4)
  - Psychomotor hyperactivity [Unknown]
  - Weight decreased [Unknown]
  - Gait disturbance [Unknown]
  - Blood glucose abnormal [Unknown]

NARRATIVE: CASE EVENT DATE: 2018
